FAERS Safety Report 17397713 (Version 1)
Quarter: 2020Q1

REPORT INFORMATION
  Report Type: Spontaneous
  Country: FR (occurrence: FR)
  Receive Date: 20200210
  Receipt Date: 20200210
  Transmission Date: 20200409
  Serious: Yes (Other)
  Sender: FDA-Public Use
  Company Number: NVSC2020FR031159

PATIENT
  Age: 33 Year
  Sex: Female

DRUGS (2)
  1. AMOXICILLIN. [Suspect]
     Active Substance: AMOXICILLIN
     Indication: TONSILLITIS
     Dosage: 1 UNK (TOTAL)
     Route: 048
     Dates: start: 20190708, end: 20190708
  2. IBUPROFENE [Concomitant]
     Active Substance: IBUPROFEN
     Indication: TONSILLITIS
     Dosage: 1 UNK (TOTAL)
     Route: 048
     Dates: start: 20190708, end: 20190708

REACTIONS (3)
  - Dyspnoea [Recovered/Resolved]
  - Laryngeal discomfort [Recovered/Resolved]
  - Rash pruritic [Recovered/Resolved]

NARRATIVE: CASE EVENT DATE: 20190708
